FAERS Safety Report 17647608 (Version 5)
Quarter: 2021Q3

REPORT INFORMATION
  Report Type: Spontaneous
  Country: US (occurrence: US)
  Receive Date: 20200408
  Receipt Date: 20210720
  Transmission Date: 20211014
  Serious: No
  Sender: FDA-Public Use
  Company Number: US-VERTEX PHARMACEUTICALS-2019-004616

PATIENT
  Sex: Female

DRUGS (3)
  1. KALYDECO [Suspect]
     Active Substance: IVACAFTOR
     Indication: CYSTIC FIBROSIS
     Dosage: 75 MG, BID
     Route: 048
     Dates: start: 20170615
  2. KALYDECO [Suspect]
     Active Substance: IVACAFTOR
     Dosage: 75 MG, QD (05 DAYS PER WEEK)
     Route: 048
     Dates: start: 2019, end: 20200915
  3. KALYDECO [Suspect]
     Active Substance: IVACAFTOR
     Dosage: 75 MG
     Route: 048
     Dates: start: 20201202

REACTIONS (2)
  - Liver disorder [Unknown]
  - Liver function test increased [Not Recovered/Not Resolved]

NARRATIVE: CASE EVENT DATE: 2019
